FAERS Safety Report 4754858-7 (Version None)
Quarter: 2005Q3

REPORT INFORMATION
  Report Type: 
  Country: None (occurrence: None)
  Receive Date: 20050826
  Receipt Date: 20050826
  Transmission Date: 20060218
  Serious: Yes (Hospitalization, Disabling)
  Sender: FDA-Public Use
  Company Number: None

PATIENT
  Age: 85 Year
  Sex: Male
  Weight: 77.1115 kg

DRUGS (10)
  1. AMIODARONE [Suspect]
     Indication: ATRIAL FIBRILLATION
     Dosage: 200 MG QD /BID PO
     Route: 048
     Dates: start: 20040213, end: 20050723
  2. CLONIDINE [Concomitant]
  3. POTASSIUM [Concomitant]
  4. AMIODARONE [Concomitant]
  5. LOTENSIN [Concomitant]
  6. BENZOPRINE [Concomitant]
  7. CIPROFLOXACIN HCL [Concomitant]
  8. TENAZOSIN [Concomitant]
  9. PROSCAR [Concomitant]
  10. HYDROCHLOROTHIAZIDE [Concomitant]

REACTIONS (9)
  - ALANINE AMINOTRANSFERASE INCREASED [None]
  - ASPARTATE AMINOTRANSFERASE INCREASED [None]
  - ASTHENIA [None]
  - BLOOD BILIRUBIN INCREASED [None]
  - COORDINATION ABNORMAL [None]
  - FALL [None]
  - HEPATOTOXICITY [None]
  - POLYNEUROPATHY [None]
  - WHEELCHAIR USER [None]
